FAERS Safety Report 5699454-2 (Version None)
Quarter: 2008Q2

REPORT INFORMATION
  Report Type: 
  Country: None (occurrence: None)
  Receive Date: 20080407
  Receipt Date: 20080407
  Transmission Date: 20081010
  Serious: Yes (Hospitalization)
  Sender: FDA-Public Use
  Company Number: None

PATIENT
  Age: 90 Year
  Sex: Male
  Weight: 75 kg

DRUGS (2)
  1. LUPRON [Suspect]
     Indication: PROSTATE CANCER
     Dosage: 225 MG EVERY 3 MONTHS IM
     Route: 030
     Dates: start: 20070205
  2. ZOMETA [Suspect]
     Indication: PROSTATE CANCER
     Dosage: 3.3 MG ONCE IV
     Route: 042
     Dates: start: 20070129, end: 20070129

REACTIONS (1)
  - SYNCOPE [None]
